FAERS Safety Report 22890773 (Version 4)
Quarter: 2023Q4

REPORT INFORMATION
  Report Type: Report from Study
  Country: US (occurrence: US)
  Receive Date: 20230901
  Receipt Date: 20231111
  Transmission Date: 20240109
  Serious: Yes (Hospitalization, Other)
  Sender: FDA-Public Use
  Company Number: US-ABBVIE-5390247

PATIENT
  Age: 64 Year
  Sex: Female

DRUGS (2)
  1. HUMIRA [Suspect]
     Active Substance: ADALIMUMAB
     Indication: Psoriatic arthropathy
     Dosage: HUMIRA CITRATE FREE PEN, FORM STRENGTH: 40 MILLIGRAM
     Route: 058
     Dates: end: 2023
  2. HUMIRA [Suspect]
     Active Substance: ADALIMUMAB
     Dosage: FORM STRENGTH: 40MG?HUMIRA CITRATE FREE
     Route: 058
     Dates: start: 2023, end: 2023

REACTIONS (5)
  - Osteoarthritis [Recovering/Resolving]
  - Musculoskeletal disorder [Unknown]
  - Fall [Unknown]
  - Ligament sprain [Unknown]
  - Pruritus [Unknown]

NARRATIVE: CASE EVENT DATE: 20230901
